FAERS Safety Report 7997668-X (Version None)
Quarter: 2011Q4

REPORT INFORMATION
  Report Type: 
  Country: None (occurrence: None)
  Receive Date: 20111221
  Receipt Date: 20111215
  Transmission Date: 20120403
  Serious: Yes (Other)
  Sender: FDA-Public Use
  Company Number: GB-JNJFOC-20111009439

PATIENT
  Sex: Male

DRUGS (3)
  1. SIMPONI [Suspect]
     Route: 058
     Dates: start: 20111202
  2. SIMPONI [Suspect]
     Indication: PRODUCT USED FOR UNKNOWN INDICATION
     Route: 058
     Dates: start: 20111002
  3. SIMPONI [Suspect]
     Route: 058

REACTIONS (3)
  - BLOOD ALBUMIN INCREASED [None]
  - MUSCULOSKELETAL PAIN [None]
  - ALANINE AMINOTRANSFERASE INCREASED [None]
